FAERS Safety Report 7267173-7 (Version None)
Quarter: 2011Q1

REPORT INFORMATION
  Report Type: 
  Country: None (occurrence: None)
  Receive Date: 20110201
  Receipt Date: 20110118
  Transmission Date: 20110831
  Serious: Yes (Hospitalization)
  Sender: FDA-Public Use
  Company Number: US-RANBAXY-2011US-41389

PATIENT

DRUGS (7)
  1. ESMOPERAZOLE MAGNESIUM [Concomitant]
     Indication: PRODUCT USED FOR UNKNOWN INDICATION
     Dosage: UNK, UNK
     Route: 065
     Dates: start: 20071031
  2. VERAPAMIL [Suspect]
     Indication: PRODUCT USED FOR UNKNOWN INDICATION
     Dosage: 240 MG, BID
     Route: 065
     Dates: end: 20080425
  3. HYTRIN [Suspect]
     Indication: HYPERTENSION
     Dosage: UNK, UNK
     Route: 048
     Dates: start: 20050101, end: 20080424
  4. CELECOXIB, IBUPROFEN, NAPROXEN PLACEBO [Suspect]
     Indication: RHEUMATOID ARTHRITIS
     Dosage: UNK
     Route: 065
     Dates: start: 20071031
  5. HYTRIN [Suspect]
     Dosage: 10 MG, QD
     Route: 048
     Dates: start: 20080424, end: 20101205
  6. VERAPAMIL [Suspect]
     Dosage: 240 MG, QD
     Route: 048
     Dates: start: 20080425, end: 20081205
  7. CELECOXIB, IBUPROFEN, NAPROXEN PLACEBO [Suspect]
     Indication: OSTEOARTHRITIS

REACTIONS (2)
  - DYSARTHRIA [None]
  - ORTHOSTATIC HYPOTENSION [None]
